FAERS Safety Report 6218298-6 (Version None)
Quarter: 2009Q2

REPORT INFORMATION
  Report Type: 
  Country: None (occurrence: None)
  Receive Date: 20090604
  Receipt Date: 20090604
  Transmission Date: 20091009
  Serious: Yes (Life-Threatening, Hospitalization, Other)
  Sender: FDA-Public Use
  Company Number: None

PATIENT
  Sex: Female
  Weight: 52.1637 kg

DRUGS (1)
  1. ZYPREXA [Suspect]
     Indication: BIPOLAR DISORDER
     Dosage: 7.5 10 MGS DAILY BUCCAL
     Route: 002
     Dates: start: 20020426, end: 20070515

REACTIONS (7)
  - AMNESIA [None]
  - CONFUSIONAL STATE [None]
  - FALL [None]
  - FEAR [None]
  - SKULL FRACTURE [None]
  - SOMNAMBULISM [None]
  - THROMBOSIS [None]
